FAERS Safety Report 12244276 (Version 2)
Quarter: 2016Q3

REPORT INFORMATION
  Report Type: Report from Study
  Country: US (occurrence: US)
  Receive Date: 20160407
  Receipt Date: 20160711
  Transmission Date: 20161109
  Serious: Yes (Other)
  Sender: FDA-Public Use
  Company Number: US-ROCHE-635860

PATIENT

DRUGS (1)
  1. BEVACIZUMAB [Suspect]
     Active Substance: BEVACIZUMAB
     Indication: GLAUCOMA
     Dosage: 1.25 MG / 0.05 ML UNDER STERILE CONDITIONS.
     Route: 050

REACTIONS (11)
  - Vitreous haemorrhage [Unknown]
  - Hyphaema [Unknown]
  - Choroidal detachment [Unknown]
  - Corneal epithelium defect [Unknown]
  - Hypotonia [Unknown]
  - Dellen [Unknown]
  - Wound secretion [Unknown]
  - Lenticular opacities [Unknown]
  - Ulcerative keratitis [Unknown]
  - Device occlusion [Unknown]
  - Retinal detachment [Unknown]
